FAERS Safety Report 8969896 (Version 1)
Quarter: 2012Q4

REPORT INFORMATION
  Report Type: 
  Country: US (occurrence: US)
  Receive Date: 20121218
  Receipt Date: 20121218
  Transmission Date: 20130627
  Serious: No
  Sender: FDA-Public Use
  Company Number: US-BRISTOL-MYERS SQUIBB COMPANY-16219388

PATIENT
  Age: 40 Year
  Sex: Female
  Weight: 63.04 kg

DRUGS (5)
  1. ABILIFY [Suspect]
     Indication: DEPRESSION
     Dosage: Initial dose 5mg, increased to 10mg
  2. OPANA [Concomitant]
  3. NEXIUM [Concomitant]
  4. AZANTAC [Concomitant]
  5. LEXAPRO [Concomitant]

REACTIONS (1)
  - Gastrointestinal inflammation [Recovered/Resolved]
